FAERS Safety Report 8167615-9 (Version None)
Quarter: 2012Q1

REPORT INFORMATION
  Report Type: 
  Country: None (occurrence: None)
  Receive Date: 20120227
  Receipt Date: 20120222
  Transmission Date: 20120608
  Serious: Yes (Other)
  Sender: FDA-Public Use
  Company Number: US-PFIZER INC-2011199229

PATIENT
  Sex: Female

DRUGS (12)
  1. EFFEXOR [Concomitant]
     Indication: DEPRESSION
     Dosage: UNK
     Dates: start: 20070101, end: 20080101
  2. TRAMADOL [Concomitant]
     Indication: PAIN
     Dosage: UNK
     Dates: start: 20070101, end: 20100101
  3. SEROQUEL [Concomitant]
     Indication: ANXIETY
  4. CHANTIX [Suspect]
     Indication: SMOKING CESSATION THERAPY
     Dosage: STARTER PACK
     Dates: start: 20080711, end: 20080811
  5. LANTUS [Concomitant]
     Indication: DIABETES MELLITUS
     Dosage: UNK
     Dates: start: 20070101, end: 20080101
  6. PROSOM [Concomitant]
     Indication: INSOMNIA
     Dosage: 2 MG, 1X/DAY
     Dates: start: 20070101
  7. SEROQUEL [Concomitant]
     Indication: INSOMNIA
     Dosage: UNK
     Dates: start: 20060101, end: 20080101
  8. VISTARIL [Concomitant]
     Indication: NAUSEA
     Dosage: UNK
     Dates: start: 20070101, end: 20110101
  9. GLUCOPHAGE [Concomitant]
     Indication: DIABETES MELLITUS
     Dosage: UNK
     Dates: start: 20060101, end: 20090101
  10. ACETAMINOPHEN [Concomitant]
     Dosage: UNK
     Dates: start: 19850101
  11. LOPRESSOR [Concomitant]
     Indication: HYPERTENSION
     Dosage: UNK
     Dates: start: 20070101
  12. TORADOL [Concomitant]
     Indication: PAIN
     Dosage: UNK
     Dates: start: 20070101, end: 20110101

REACTIONS (10)
  - INSOMNIA [None]
  - MENTAL DISORDER [None]
  - PARANOIA [None]
  - ANXIETY [None]
  - HALLUCINATION, AUDITORY [None]
  - HOMICIDAL IDEATION [None]
  - DEPRESSION [None]
  - AGGRESSION [None]
  - HALLUCINATION, VISUAL [None]
  - SUICIDAL IDEATION [None]
